FAERS Safety Report 8823803 (Version 1)
Quarter: 2012Q4

REPORT INFORMATION
  Report Type: 
  Country: US (occurrence: US)
  Receive Date: 20121003
  Receipt Date: 20121003
  Transmission Date: 20130627
  Serious: No
  Sender: FDA-Public Use
  Company Number: US-PFIZER INC-2012244293

PATIENT
  Age: 63 Year
  Sex: Female
  Weight: 74.83 kg

DRUGS (19)
  1. CHANTIX [Suspect]
     Indication: SMOKING CESSATION THERAPY
     Dosage: UNK
     Route: 048
  2. CHANTIX [Suspect]
     Dosage: 0.5 mg, daily
     Route: 048
     Dates: start: 201209
  3. CHANTIX [Suspect]
     Dosage: UNK
     Route: 048
  4. XANAX [Suspect]
     Indication: AGITATION
     Dosage: 2 mg, as needed
     Route: 048
  5. PROZAC [Suspect]
     Indication: MENTAL DISORDER
     Dosage: 40mg morning and 20mg at night, 2x/day
  6. METFORMIN HCL/PIOGLITAZONE HCL [Concomitant]
     Indication: DIABETES MELLITUS
     Dosage: 15/500 mg, daily
  7. NEURONTIN [Concomitant]
     Indication: RESTLESS LEGS SYNDROME
     Dosage: 200 mg, 2x/day
     Route: 048
  8. NEURONTIN [Concomitant]
     Indication: NEUROPATHY PERIPHERAL
  9. FUROSEMIDE [Concomitant]
     Indication: DIURETIC THERAPY
     Dosage: 20 mg, daily
  10. FUROSEMIDE [Concomitant]
     Indication: CARDIAC DISORDER
  11. POTASSIUM [Concomitant]
     Dosage: 20 mg, daily
  12. LISINOPRIL [Concomitant]
     Indication: BLOOD PRESSURE ABNORMAL
     Dosage: 10 mg, daily
  13. PRILOSEC [Concomitant]
     Dosage: 20 mg, daily
  14. SINGULAIR [Concomitant]
     Indication: HYPERSENSITIVITY
     Dosage: 10 mg, daily at night
  15. ACETYLSALICYLIC ACID [Concomitant]
     Indication: ANTICOAGULANT THERAPY
     Dosage: 81 mg, daily
  16. LEVOTHYROXINE [Concomitant]
     Indication: THYROID DISORDER
     Dosage: 100 ug, daily in morning
  17. LORTAB [Concomitant]
     Indication: OSTEOPOROSIS
     Dosage: 7.5/500 mg, as needed
  18. LORTAB [Concomitant]
     Indication: ARTHRITIS
  19. ADVAIR DISKUS [Concomitant]
     Indication: CHRONIC OBSTRUCTIVE PULMONARY DISEASE
     Dosage: 500/50 ug, daily

REACTIONS (6)
  - Hallucination [Not Recovered/Not Resolved]
  - Nausea [Recovered/Resolved]
  - Vomiting [Recovered/Resolved]
  - Mental disorder [Unknown]
  - Drug ineffective for unapproved indication [Unknown]
  - Off label use [Unknown]
